FAERS Safety Report 8363285-5 (Version None)
Quarter: 2012Q2

REPORT INFORMATION
  Report Type: 
  Country: None (occurrence: None)
  Receive Date: 20120516
  Receipt Date: 20111004
  Transmission Date: 20120825
  Serious: No
  Sender: FDA-Public Use
  Company Number: US-GLAXOSMITHKLINE-A0947014A

PATIENT
  Age: 44 Year
  Sex: Female

DRUGS (5)
  1. PREDNISONE [Concomitant]
  2. CLARITIN [Concomitant]
  3. BACTROBAN [Suspect]
     Indication: IMPETIGO
     Dosage: 1APP THREE TIMES PER DAY
     Route: 061
     Dates: start: 20110927
  4. ACYCLOVIR [Concomitant]
  5. ACYCLOVIR [Concomitant]

REACTIONS (1)
  - DRUG INEFFECTIVE [None]
